FAERS Safety Report 8294693-9 (Version None)
Quarter: 2012Q2

REPORT INFORMATION
  Report Type: 
  Country: None (occurrence: None)
  Receive Date: 20120418
  Receipt Date: 20120409
  Transmission Date: 20120825
  Serious: Yes (Other)
  Sender: FDA-Public Use
  Company Number: KZ-JNJFOC-20120404832

PATIENT
  Age: 64 Year
  Sex: Female

DRUGS (2)
  1. TRABECTEDIN [Suspect]
     Indication: OVARIAN CANCER
     Route: 042
  2. DOXORUBICIN HYDROCHLORIDE [Suspect]
     Indication: OVARIAN CANCER
     Route: 042

REACTIONS (1)
  - HEPATIC ENZYME INCREASED [None]
